FAERS Safety Report 9010635 (Version 4)
Quarter: 2013Q1

REPORT INFORMATION
  Report Type: Spontaneous
  Country: US (occurrence: US)
  Receive Date: 20130109
  Receipt Date: 20130226
  Transmission Date: 20140127
  Serious: Yes (Other)
  Sender: FDA-Public Use
  Company Number: US-PFIZER INC-2013009017

PATIENT
  Age: 23 Year
  Sex: Male
  Weight: 65.76 kg

DRUGS (4)
  1. EFFEXOR XR [Suspect]
     Indication: DEPRESSION
     Dosage: 75 MG, 1X/DAY
     Route: 048
     Dates: start: 20100107, end: 20121206
  2. EFFEXOR XR [Suspect]
     Indication: ANXIETY
     Dosage: 150 MG, DAILY
     Route: 048
     Dates: start: 20121207, end: 201301
  3. EFFEXOR XR [Suspect]
     Dosage: 75 MG, DAILY
     Route: 048
     Dates: start: 201301, end: 20130117
  4. AMOXICILLIN [Concomitant]
     Indication: ACNE
     Dosage: 500 MG, DAILY

REACTIONS (2)
  - Suicidal ideation [Recovered/Resolved]
  - Drug ineffective [Unknown]
